FAERS Safety Report 5064486-4 (Version None)
Quarter: 2006Q3

REPORT INFORMATION
  Report Type: 
  Country: None (occurrence: None)
  Receive Date: 20060726
  Receipt Date: 20060606
  Transmission Date: 20061208
  Serious: Yes (Other)
  Sender: FDA-Public Use
  Company Number: 2006088082

PATIENT
  Sex: Female
  Weight: 74.8435 kg

DRUGS (5)
  1. LIPITOR [Suspect]
     Indication: BLOOD CHOLESTEROL INCREASED
     Dosage: 20 MG (20 MG, 1 IN 1 D)
     Dates: start: 19930101, end: 20030101
  2. ZOCOR [Suspect]
     Indication: BLOOD CHOLESTEROL INCREASED
     Dosage: 20 MG (20 MG, 1 IN 1 D) 3 YEARS AGO
  3. CRESTOR [Suspect]
     Indication: BLOOD CHOLESTEROL INCREASED
     Dosage: 20 MG (20 MG, 1 IN 1 D) 2 - 3 MONTHS AGO- STOPPED
  4. NORVASC [Concomitant]
  5. ACIPHEX [Concomitant]

REACTIONS (7)
  - ABASIA [None]
  - ASTHENIA [None]
  - LOW DENSITY LIPOPROTEIN INCREASED [None]
  - MOVEMENT DISORDER [None]
  - MUSCLE DISORDER [None]
  - MYALGIA [None]
  - PAIN IN EXTREMITY [None]
